FAERS Safety Report 25382539 (Version 1)
Quarter: 2025Q2

REPORT INFORMATION
  Report Type: Report from Study
  Country: GR (occurrence: GR)
  Receive Date: 20250601
  Receipt Date: 20250601
  Transmission Date: 20250716
  Serious: Yes (Disabling)
  Sender: NOVARTIS
  Company Number: GR-002147023-NVSC2025GR080029

PATIENT
  Age: 44 Year
  Sex: Female

DRUGS (7)
  1. KESIMPTA [Suspect]
     Active Substance: OFATUMUMAB
     Indication: Multiple sclerosis relapse
     Route: 058
     Dates: start: 20241203
  2. LEVOTHYROXINE [Concomitant]
     Active Substance: LEVOTHYROXINE
     Indication: Hypothyroidism
     Route: 065
  3. INSULIN NOS [Concomitant]
     Active Substance: INSULIN NOS
     Indication: Type 1 diabetes mellitus
     Route: 065
  4. TRESIBA [Concomitant]
     Active Substance: INSULIN DEGLUDEC
     Indication: Type 1 diabetes mellitus
     Dosage: 50 UNITS/ 24H 100 MG, QD
     Route: 065
  5. LYUMJEV [Concomitant]
     Active Substance: INSULIN LISPRO-AABC
     Indication: Type 1 diabetes mellitus
     Dosage: 35 DOSAGE FORM, QD
     Route: 065
  6. LYUMJEV [Concomitant]
     Active Substance: INSULIN LISPRO-AABC
     Dosage: 26 UNITS, QD
     Route: 065
  7. Pitavador [Concomitant]
     Indication: Blood cholesterol abnormal
     Dosage: 10 MG (TABLET), QD
     Route: 065

REACTIONS (3)
  - Limb discomfort [Not Recovered/Not Resolved]
  - Dysstasia [Not Recovered/Not Resolved]
  - Inappropriate schedule of product administration [Not Recovered/Not Resolved]
